FAERS Safety Report 6331708-9 (Version None)
Quarter: 2009Q3

REPORT INFORMATION
  Report Type: 
  Country: None (occurrence: None)
  Receive Date: 20090827
  Receipt Date: 20090817
  Transmission Date: 20100115
  Serious: Yes (Life-Threatening, Hospitalization)
  Sender: FDA-Public Use
  Company Number: DE-VALEANT-2009VX001513

PATIENT
  Age: 75 Year
  Sex: Female
  Weight: 75 kg

DRUGS (3)
  1. PYRIDOSTIGMINE BROMIDE [Suspect]
     Indication: MYASTHENIA GRAVIS CRISIS
     Route: 048
     Dates: start: 20090303, end: 20090409
  2. AZATHIOPRINE [Suspect]
     Indication: MYASTHENIA GRAVIS CRISIS
     Route: 048
     Dates: start: 20090316, end: 20090409
  3. PREDNISOLONE [Suspect]
     Indication: MYASTHENIA GRAVIS CRISIS
     Route: 048
     Dates: start: 20090303, end: 20090409

REACTIONS (7)
  - BACTERIAL INFECTION [None]
  - FUNGAL INFECTION [None]
  - FUNGAL PERITONITIS [None]
  - MEDIASTINITIS [None]
  - OESOPHAGEAL CANDIDIASIS [None]
  - OESOPHAGEAL PERFORATION [None]
  - PERITONITIS BACTERIAL [None]
